FAERS Safety Report 25134663 (Version 1)
Quarter: 2025Q1

REPORT INFORMATION
  Report Type: Report from Study
  Country: US (occurrence: US)
  Receive Date: 20250328
  Receipt Date: 20250328
  Transmission Date: 20250409
  Serious: Yes (Death, Other)
  Sender: ALEXION PHARMACEUTICALS
  Company Number: US-AstraZeneca-CH-00835245A

PATIENT
  Age: 82 Year

DRUGS (3)
  1. OSIMERTINIB [Suspect]
     Active Substance: OSIMERTINIB
     Indication: Product used for unknown indication
     Route: 065
  2. ORGOVYX [Concomitant]
     Active Substance: RELUGOLIX
     Dosage: 120 MILLIGRAM, QD
     Route: 065
  3. DOPTELET [Concomitant]
     Active Substance: AVATROMBOPAG MALEATE
     Dosage: 20 MILLIGRAM, QID
     Route: 065

REACTIONS (1)
  - Death [Fatal]
